FAERS Safety Report 8580936-0 (Version None)
Quarter: 2012Q3

REPORT INFORMATION
  Report Type: 
  Country: None (occurrence: None)
  Receive Date: 20120726
  Receipt Date: 20120713
  Transmission Date: 20120928
  Serious: Yes (Other)
  Sender: FDA-Public Use
  Company Number: 2012AP002112

PATIENT
  Age: 47 Year
  Sex: Female

DRUGS (3)
  1. AMITRIPTYLINE HCL [Concomitant]
  2. RAMIPRIL [Suspect]
     Indication: HYPERTENSION
     Dosage: 10 MG;PO
     Route: 048
     Dates: start: 20120624
  3. LEVOTHYROXINE SODIUM [Concomitant]

REACTIONS (3)
  - MUSCLE STRAIN [None]
  - PRODUCTIVE COUGH [None]
  - VOMITING [None]
